FAERS Safety Report 8884356 (Version 1)
Quarter: 2012Q4

REPORT INFORMATION
  Report Type: 
  Country: US (occurrence: US)
  Receive Date: 20121102
  Receipt Date: 20121102
  Transmission Date: 20130627
  Serious: No
  Sender: FDA-Public Use
  Company Number: US-ASTRAZENECA-2012SE21931

PATIENT
  Age: 87 Year
  Sex: Female
  Weight: 67.1 kg

DRUGS (3)
  1. CRESTOR [Suspect]
     Indication: BLOOD CHOLESTEROL ABNORMAL
     Route: 048
  2. CRESTOR [Suspect]
     Indication: BLOOD CHOLESTEROL ABNORMAL
     Route: 048
  3. ADVIL [Concomitant]
     Indication: PAIN

REACTIONS (5)
  - Cyst [Unknown]
  - Carotid arteriosclerosis [Unknown]
  - Visual impairment [Unknown]
  - Sciatica [Unknown]
  - Low density lipoprotein increased [Unknown]
